FAERS Safety Report 6666295-9 (Version None)
Quarter: 2010Q2

REPORT INFORMATION
  Report Type: 
  Country: None (occurrence: None)
  Receive Date: 20100402
  Receipt Date: 20100323
  Transmission Date: 20101027
  Serious: Yes (Death, Hospitalization)
  Sender: FDA-Public Use
  Company Number: CN-ABBOTT-09P-035-0581403-00

PATIENT
  Sex: Female
  Weight: 42 kg

DRUGS (6)
  1. HUMIRA [Suspect]
     Indication: RHEUMATOID ARTHRITIS
     Route: 058
     Dates: start: 20071225, end: 20090609
  2. METHOTREXATE [Concomitant]
     Indication: RHEUMATOID ARTHRITIS
     Route: 048
     Dates: start: 20070415
  3. FOLIC ACID [Concomitant]
     Indication: PROPHYLAXIS
     Route: 048
     Dates: start: 20070415
  4. FOLIC ACID [Concomitant]
     Indication: ADVERSE DRUG REACTION
  5. ACECLOFENAC [Concomitant]
     Indication: SWELLING
     Route: 048
     Dates: start: 20070415
  6. ACECLOFENAC [Concomitant]
     Indication: PAIN

REACTIONS (2)
  - DEATH [None]
  - DISSEMINATED TUBERCULOSIS [None]
